FAERS Safety Report 6000253-2 (Version None)
Quarter: 2008Q4

REPORT INFORMATION
  Report Type: 
  Country: None (occurrence: None)
  Receive Date: 20081215
  Receipt Date: 20081124
  Transmission Date: 20090506
  Serious: Yes (Hospitalization)
  Sender: FDA-Public Use
  Company Number: US-MERCK-0606USA01584

PATIENT
  Age: 51 Year
  Sex: Female
  Weight: 50 kg

DRUGS (4)
  1. FOSAMAX [Suspect]
     Indication: OSTEOPOROSIS
     Route: 048
     Dates: end: 20010101
  2. FOSAMAX [Suspect]
     Route: 048
     Dates: start: 19971219
  3. VITAMIN D (UNSPECIFIED) [Concomitant]
     Indication: MEDICAL DIET
     Route: 048
     Dates: start: 19971219
  4. [THERAPY UNSPECIFIED] [Concomitant]
     Route: 065
     Dates: start: 19971219

REACTIONS (9)
  - FOOT FRACTURE [None]
  - FOREIGN BODY TRAUMA [None]
  - INFECTION [None]
  - JAW DISORDER [None]
  - JOINT CREPITATION [None]
  - LOOSE TOOTH [None]
  - ORAL PAIN [None]
  - POST-TRAUMATIC PAIN [None]
  - RIB FRACTURE [None]
